FAERS Safety Report 5473885-8 (Version None)
Quarter: 2007Q4

REPORT INFORMATION
  Report Type: 
  Country: None (occurrence: None)
  Receive Date: 20071001
  Receipt Date: 20070920
  Transmission Date: 20080405
  Serious: Yes (Other)
  Sender: FDA-Public Use
  Company Number: IT-PFIZER INC-2007079206

PATIENT
  Age: 66 Year
  Sex: Male

DRUGS (4)
  1. SUTENT [Suspect]
     Indication: METASTASES TO LUNG
     Route: 048
  2. INSULIN [Concomitant]
  3. CLIVARIN [Concomitant]
     Dosage: TEXT:4200 UI
  4. INTERFERON [Concomitant]

REACTIONS (1)
  - POLYCYTHAEMIA [None]
